FAERS Safety Report 6447468-7 (Version None)
Quarter: 2009Q4

REPORT INFORMATION
  Report Type: 
  Country: None (occurrence: None)
  Receive Date: 20091119
  Receipt Date: 20091110
  Transmission Date: 20100525
  Serious: Yes (Hospitalization, Other)
  Sender: FDA-Public Use
  Company Number: US-B.I. PHARMACEUTICALS,INC./RIDGEFIELD-2009-BP-13032BP

PATIENT
  Sex: Male
  Weight: 60.8 kg

DRUGS (13)
  1. APTIVUS/RITONAVIR CAPSULES [Suspect]
     Indication: ANTIRETROVIRAL THERAPY
     Dosage: 1000 MG
     Route: 048
     Dates: start: 20060309, end: 20090927
  2. NORVIR [Suspect]
     Indication: ANTIRETROVIRAL THERAPY
     Dosage: 400 MG
     Route: 048
     Dates: start: 20060309, end: 20090927
  3. MARAVIROC [Suspect]
     Indication: HIV INFECTION
     Dosage: 600 MG
     Route: 048
     Dates: start: 20070801, end: 20090927
  4. RETROVIR [Concomitant]
     Indication: ANTIRETROVIRAL THERAPY
     Dosage: 600 MG
     Route: 048
     Dates: start: 20060309, end: 20090927
  5. TRUVADA [Concomitant]
     Indication: ANTIRETROVIRAL THERAPY
     Route: 048
     Dates: start: 20050101, end: 20090927
  6. ISENTRESS [Concomitant]
     Indication: ANTIRETROVIRAL THERAPY
     Dosage: 800 MG
     Route: 048
     Dates: start: 20080401, end: 20090927
  7. BACTRIM DS [Concomitant]
     Indication: PROPHYLAXIS
  8. PRILOSEC [Concomitant]
  9. AZELASTINE HYDROCHLORIDE (AZELASTINE HYDROCHLORIDE) [Concomitant]
  10. ATIVAN [Concomitant]
  11. PAXIL [Concomitant]
  12. TRICOR [Concomitant]
     Dates: end: 20090924
  13. ZETIA [Concomitant]
     Dates: end: 20090924

REACTIONS (3)
  - ABDOMINAL PAIN [None]
  - BLOOD CREATININE INCREASED [None]
  - TRANSAMINASES INCREASED [None]
